FAERS Safety Report 26006562 (Version 2)
Quarter: 2025Q4

REPORT INFORMATION
  Report Type: Spontaneous
  Country: US (occurrence: US)
  Receive Date: 20251106
  Receipt Date: 20251118
  Transmission Date: 20260118
  Serious: Yes (Death, Life-Threatening, Hospitalization)
  Sender: TEVA
  Company Number: US-TEVA-VS-3386848

PATIENT
  Age: 63 Year
  Sex: Female

DRUGS (1)
  1. ATORVASTATIN [Suspect]
     Active Substance: ATORVASTATIN
     Indication: Product used for unknown indication
     Route: 065

REACTIONS (7)
  - Acute hepatic failure [Fatal]
  - Hyperbilirubinaemia [Unknown]
  - Renal failure [Unknown]
  - Treatment noncompliance [Unknown]
  - Coagulopathy [Unknown]
  - Multiple organ dysfunction syndrome [Fatal]
  - Encephalopathy [Unknown]
